FAERS Safety Report 12490233 (Version 1)
Quarter: 2016Q2

REPORT INFORMATION
  Report Type: Spontaneous
  Country: DE (occurrence: DE)
  Receive Date: 20160622
  Receipt Date: 20160622
  Transmission Date: 20160815
  Serious: Yes (Hospitalization, Congenital Anomaly, Other)
  Sender: FDA-Public Use
  Company Number: DE-PFIZER INC-2016304575

PATIENT
  Age: 1 Day
  Sex: Male
  Weight: 2.47 kg

DRUGS (5)
  1. OLANZAPINE. [Suspect]
     Active Substance: OLANZAPINE
     Indication: SCHIZOPHRENIA
     Dosage: 10 MG, 1X/DAY (THROUGHOUT PREGNANCY)
     Route: 064
     Dates: start: 20141222, end: 20150508
  2. SERTRALINE HCL [Suspect]
     Active Substance: SERTRALINE HYDROCHLORIDE
     Indication: SCHIZOPHRENIA
     Dosage: 50 MG, 1X/DAY (GW 10+1 UNTIL 37+1)
     Route: 064
     Dates: start: 20150303, end: 20150908
  3. RISPERIDONE. [Suspect]
     Active Substance: RISPERIDONE
     Indication: SCHIZOPHRENIA
     Dosage: 1 MG, 1X/DAY (THROUGHOUT PREGNANCY)
     Route: 064
     Dates: start: 20141222, end: 20150908
  4. VITAVERLAN [Concomitant]
     Indication: PROPHYLAXIS OF NEURAL TUBE DEFECT
     Dosage: 0.4 MG, DAILY, (GW 3+3 UNTIL 37+1)
     Route: 064
  5. PAROXETINE. [Suspect]
     Active Substance: PAROXETINE
     Indication: SCHIZOPHRENIA
     Dosage: 40 MG, 1X/DAY (UNTIL WEEK 10)
     Route: 064
     Dates: start: 20141222, end: 20150302

REACTIONS (5)
  - Maternal exposure during pregnancy [Unknown]
  - Ventricular septal defect [Recovered/Resolved]
  - Small for dates baby [Recovering/Resolving]
  - Atrial septal defect [Unknown]
  - Drug withdrawal syndrome neonatal [Recovered/Resolved]

NARRATIVE: CASE EVENT DATE: 20150908
